FAERS Safety Report 13656316 (Version 1)
Quarter: 2017Q2

REPORT INFORMATION
  Report Type: Other
  Country: JP (occurrence: JP)
  Receive Date: 20170615
  Receipt Date: 20170615
  Transmission Date: 20170830
  Serious: Yes (Hospitalization)
  Sender: FDA-Public Use
  Company Number: JP-ORCHID HEALTHCARE-2022064

PATIENT
  Age: 56 Year
  Sex: Male

DRUGS (3)
  1. PENTAMIDINE ISETHIONATE [Suspect]
     Active Substance: PENTAMIDINE ISETHIONATE
     Route: 065
  2. LEVOFLOXACIN. [Suspect]
     Active Substance: LEVOFLOXACIN
     Route: 065
  3. CEFOZOPREM HYDROCHLORIDE [Suspect]
     Active Substance: CEFOZOPRAN HYDROCHLORIDE
     Route: 065

REACTIONS (3)
  - Staphylococcus test positive [None]
  - Ecthyma [Recovered/Resolved]
  - Bacterial test positive [None]
